FAERS Safety Report 4965684-8 (Version None)
Quarter: 2006Q2

REPORT INFORMATION
  Report Type: 
  Country: None (occurrence: None)
  Receive Date: 20060407
  Receipt Date: 20050128
  Transmission Date: 20061013
  Serious: Yes (Death, Life-Threatening)
  Sender: FDA-Public Use
  Company Number: TH-ABBOTT-05P-155-0289052-00

PATIENT
  Age: 80 Year
  Sex: Male

DRUGS (5)
  1. KLACID [Suspect]
     Indication: RESPIRATORY TRACT INFECTION
     Route: 048
     Dates: start: 20041107, end: 20041110
  2. DIGITALIS [Suspect]
     Indication: DRUG USE FOR UNKNOWN INDICATION
     Route: 048
  3. FUROSEMIDE [Suspect]
     Indication: DRUG USE FOR UNKNOWN INDICATION
     Route: 048
  4. VANCOMYCIN [Suspect]
     Indication: LUNG INFECTION
     Route: 048
     Dates: start: 20041204
  5. FLUCONAZOLE [Suspect]
     Indication: FUNGAL INFECTION
     Route: 048
     Dates: start: 20041204

REACTIONS (3)
  - FUNGAL INFECTION [None]
  - LUNG INFECTION [None]
  - STEVENS-JOHNSON SYNDROME [None]
